FAERS Safety Report 20094220 (Version 3)
Quarter: 2021Q4

REPORT INFORMATION
  Report Type: Spontaneous
  Country: US (occurrence: US)
  Receive Date: 20211122
  Receipt Date: 20211212
  Transmission Date: 20220303
  Serious: Yes (Hospitalization)
  Sender: FDA-Public Use
  Company Number: US-BIOVITRUM-2021US10874

PATIENT
  Sex: Female

DRUGS (15)
  1. SYNAGIS [Suspect]
     Active Substance: PALIVIZUMAB
     Indication: Premature baby
     Route: 030
     Dates: start: 20210819
  2. SYNAGIS [Suspect]
     Active Substance: PALIVIZUMAB
     Indication: Bronchopulmonary dysplasia
     Route: 030
     Dates: start: 20210923
  3. SYNAGIS [Suspect]
     Active Substance: PALIVIZUMAB
     Indication: Heart disease congenital
  4. FERROUS SULFATE [Concomitant]
     Active Substance: FERROUS SULFATE
  5. PROPRANOLOL HYDROCHLORIDE [Concomitant]
     Active Substance: PROPRANOLOL HYDROCHLORIDE
  6. SENNA [Concomitant]
     Active Substance: SENNA LEAF\SENNOSIDES\SENNOSIDES A AND B
  7. LACTULOSE [Concomitant]
     Active Substance: LACTULOSE
  8. BUMEX [Concomitant]
     Active Substance: BUMETANIDE
  9. SYNAGIS [Suspect]
     Active Substance: PALIVIZUMAB
     Indication: Congenital bronchiectasis
  10. SYNAGIS [Suspect]
     Active Substance: PALIVIZUMAB
     Indication: Congenital hypogammaglobulinaemia
  11. BACTRIM [Concomitant]
     Active Substance: SULFAMETHOXAZOLE\TRIMETHOPRIM
  12. MINERALS\VITAMINS [Concomitant]
     Active Substance: MINERALS\VITAMINS
  13. SYNAGIS [Suspect]
     Active Substance: PALIVIZUMAB
     Indication: Tracheal disorder
  14. LEVOTHYROXINE SODIUM [Concomitant]
     Active Substance: LEVOTHYROXINE SODIUM
  15. SYNAGIS [Suspect]
     Active Substance: PALIVIZUMAB
     Indication: Moebius II syndrome

REACTIONS (1)
  - Diarrhoea [Unknown]
